FAERS Safety Report 16965359 (Version 1)
Quarter: 2019Q4

REPORT INFORMATION
  Report Type: Spontaneous
  Country: CN (occurrence: CN)
  Receive Date: 20191028
  Receipt Date: 20191028
  Transmission Date: 20200122
  Serious: Yes (Hospitalization, Other)
  Sender: FDA-Public Use
  Company Number: CN-AMNEAL PHARMACEUTICALS-2019-AMRX-02368

PATIENT
  Age: 11 Year
  Sex: Male

DRUGS (24)
  1. METHOTREXATE. [Suspect]
     Active Substance: METHOTREXATE
     Dosage: 4 G/SQ M
     Route: 037
  2. METHOTREXATE. [Suspect]
     Active Substance: METHOTREXATE
     Dosage: 25 MILLIGRAM/SQ. METER, WEEKLY
     Route: 048
  3. MERCAPTOPURINE. [Concomitant]
     Active Substance: MERCAPTOPURINE
     Dosage: UNK, 5 COURSE INTERVAL TREATMENT
     Route: 065
  4. DEXAMETHASONE. [Concomitant]
     Active Substance: DEXAMETHASONE
     Indication: ACUTE LYMPHOCYTIC LEUKAEMIA
     Dosage: UNK, 5 COURSES OF INTERVAL TREATMENT
     Route: 065
  5. DAUNORUBICIN [Concomitant]
     Active Substance: DAUNORUBICIN
     Indication: ACUTE LYMPHOCYTIC LEUKAEMIA
     Dosage: UNK, INDUCTION TREATMENT
     Route: 065
  6. CYTARABINE. [Concomitant]
     Active Substance: CYTARABINE
     Indication: ACUTE LYMPHOCYTIC LEUKAEMIA
     Dosage: UNK, INDUCTION TREATMENT
     Route: 065
  7. DEXAMETHASONE. [Concomitant]
     Active Substance: DEXAMETHASONE
     Indication: MUCOSAL TOXICITY
     Dosage: UNK, 5 COURSES OF INTERVAL TREATMENT
     Route: 065
  8. DASATINIB. [Suspect]
     Active Substance: DASATINIB
     Indication: ACUTE LYMPHOCYTIC LEUKAEMIA
     Dosage: 100 MILLIGRAM, QD
     Route: 065
  9. L-ASPARAGINASE [Concomitant]
     Active Substance: ASPARAGINASE
     Indication: ACUTE LYMPHOCYTIC LEUKAEMIA
     Dosage: UNK, INDUCTION TREATMENT
     Route: 065
  10. DAUNORUBICIN [Concomitant]
     Active Substance: DAUNORUBICIN
     Dosage: UNK, 5 COURSE INTERVAL TREATMENT
     Route: 065
  11. VINDESINE [Concomitant]
     Active Substance: VINDESINE
     Indication: ACUTE LYMPHOCYTIC LEUKAEMIA
     Dosage: UNK, INDUCTION TREATMENT
     Route: 065
  12. VINDESINE [Concomitant]
     Active Substance: VINDESINE
     Dosage: 3 MILLIGRAM/SQ. METER, DAILY
     Route: 042
  13. CYCLOPHOSPHAMIDE. [Concomitant]
     Active Substance: CYCLOPHOSPHAMIDE
     Dosage: 300 MILLIGRAM/SQ. METER, DAILY
     Route: 042
  14. CYTARABINE. [Concomitant]
     Active Substance: CYTARABINE
     Dosage: 300 MILLIGRAM/SQ. METER, DAILY
     Route: 042
  15. MERCAPTOPURINE. [Concomitant]
     Active Substance: MERCAPTOPURINE
     Indication: ACUTE LYMPHOCYTIC LEUKAEMIA
     Dosage: UNK, INDUCTION TREATMENT
     Route: 065
  16. MERCAPTOPURINE. [Concomitant]
     Active Substance: MERCAPTOPURINE
     Dosage: 50 MILLIGRAM/SQ. METER, DAILY
     Route: 048
  17. DEXAMETHASONE. [Concomitant]
     Active Substance: DEXAMETHASONE
     Indication: SKIN TOXICITY
     Dosage: 8 MILLIGRAM/SQ. METER, DAILY
     Route: 042
  18. PREDNISONE. [Concomitant]
     Active Substance: PREDNISONE
     Indication: ACUTE LYMPHOCYTIC LEUKAEMIA
     Dosage: UNK, INDUCTION TREATMENT
     Route: 065
  19. CYCLOPHOSPHAMIDE. [Concomitant]
     Active Substance: CYCLOPHOSPHAMIDE
     Indication: ACUTE LYMPHOCYTIC LEUKAEMIA
     Dosage: UNK, INDUCTION TREATMENT
     Route: 065
  20. CYTARABINE. [Concomitant]
     Active Substance: CYTARABINE
     Dosage: UNK, HIGH DOSE
     Route: 065
  21. PEGASPARGASE [Concomitant]
     Active Substance: PEGASPARGASE
     Indication: ACUTE LYMPHOCYTIC LEUKAEMIA
     Dosage: UNK, 5 COURSES OF INTERVAL TREATMENT
     Route: 065
  22. METHOTREXATE. [Suspect]
     Active Substance: METHOTREXATE
     Indication: ACUTE LYMPHOCYTIC LEUKAEMIA
     Dosage: 5 G/SQ M
     Route: 037
  23. METHOTREXATE. [Suspect]
     Active Substance: METHOTREXATE
     Dosage: 2 G/SQ M
     Route: 037
  24. VINDESINE [Concomitant]
     Active Substance: VINDESINE
     Dosage: UNK, 5 COURSE INTERVAL TREATMENT
     Route: 065

REACTIONS (10)
  - Haemorrhage intracranial [Recovered/Resolved with Sequelae]
  - Loss of consciousness [Recovered/Resolved]
  - Hemiplegia [Unknown]
  - Mucosal inflammation [Recovered/Resolved]
  - Cholecystitis [Recovered/Resolved]
  - Bone marrow failure [Recovered/Resolved]
  - Hepatotoxicity [Recovered/Resolved]
  - Seizure [Recovered/Resolved]
  - Skin toxicity [Recovered/Resolved]
  - Gastrointestinal toxicity [Recovered/Resolved]
